FAERS Safety Report 4929769-4 (Version None)
Quarter: 2006Q1

REPORT INFORMATION
  Report Type: 
  Country: None (occurrence: None)
  Receive Date: 20060301
  Receipt Date: 20050930
  Transmission Date: 20060701
  Serious: Yes (Hospitalization, Other)
  Sender: FDA-Public Use
  Company Number: US-MERCK-0510USA01265

PATIENT
  Age: 47 Year
  Sex: Male
  Weight: 114 kg

DRUGS (8)
  1. VIOXX [Suspect]
     Route: 048
     Dates: end: 20011101
  2. AVANDIA [Concomitant]
     Route: 065
  3. LOTENSIN [Concomitant]
     Route: 065
  4. ASPIRIN [Concomitant]
     Route: 065
  5. GLUCOPHAGE [Concomitant]
     Route: 065
  6. LASIX [Concomitant]
     Route: 065
  7. POTASSIUM (UNSPECIFIED) [Concomitant]
     Route: 065
  8. PRILOSEC [Concomitant]
     Route: 065

REACTIONS (12)
  - ANGINA PECTORIS [None]
  - ANGIOPATHY [None]
  - ARRHYTHMIA [None]
  - CARDIAC FAILURE CONGESTIVE [None]
  - CARDIOVASCULAR DISORDER [None]
  - CEREBROVASCULAR ACCIDENT [None]
  - MYOCARDIAL INFARCTION [None]
  - ORGAN FAILURE [None]
  - PULMONARY EMBOLISM [None]
  - PULMONARY OEDEMA [None]
  - SLEEP APNOEA SYNDROME [None]
  - THROMBOSIS [None]
